FAERS Safety Report 23838844 (Version 1)
Quarter: 2024Q2

REPORT INFORMATION
  Report Type: Report from Study
  Country: CA (occurrence: CA)
  Receive Date: 20240509
  Receipt Date: 20240509
  Transmission Date: 20240716
  Serious: Yes (Other)
  Sender: FDA-Public Use
  Company Number: CA-ARGENX-2024-ARGX-CA002010

PATIENT

DRUGS (1)
  1. VYVGART [Suspect]
     Active Substance: EFGARTIGIMOD ALFA-FCAB
     Indication: Myasthenia gravis
     Dosage: 800 MG
     Route: 042
     Dates: start: 20240129

REACTIONS (3)
  - Myasthenia gravis [Unknown]
  - Symptom recurrence [Unknown]
  - Therapeutic response shortened [Unknown]
